FAERS Safety Report 24561414 (Version 1)
Quarter: 2024Q4

REPORT INFORMATION
  Report Type: Spontaneous
  Country: US (occurrence: None)
  Receive Date: 20241029
  Receipt Date: 20241029
  Transmission Date: 20250115
  Serious: Yes (Death)
  Sender: Public
  Company Number: None

PATIENT
  Age: 69 Year
  Sex: Male

DRUGS (1)
  1. CAPECITABINE [Suspect]
     Active Substance: CAPECITABINE
     Indication: Oesophageal carcinoma
     Dosage: OTHER FREQUENCY : BID D 1-14 OF 21-DAY CYCLE;?
     Route: 048
     Dates: start: 20240801

REACTIONS (1)
  - Death [None]

NARRATIVE: CASE EVENT DATE: 20241017
